FAERS Safety Report 22200833 (Version 1)
Quarter: 2023Q2

REPORT INFORMATION
  Report Type: Spontaneous
  Country: FR (occurrence: FR)
  Receive Date: 20230412
  Receipt Date: 20230412
  Transmission Date: 20230722
  Serious: Yes (Life-Threatening, Hospitalization, Other)
  Sender: FDA-Public Use
  Company Number: FR-AFSSAPS-BS2023000276

PATIENT
  Age: 36 Year
  Sex: Female
  Weight: 86.4 kg

DRUGS (7)
  1. FLUCONAZOLE [Suspect]
     Active Substance: FLUCONAZOLE
     Indication: Cytokine release syndrome
     Dosage: 200 MILLIGRAM, ONCE A DAY
     Route: 048
     Dates: start: 20220318, end: 20220328
  2. CYCLOPHOSPHAMIDE [Suspect]
     Active Substance: CYCLOPHOSPHAMIDE
     Indication: Lymphodepletion
     Dosage: 960 MILLIGRAM, ONCE A DAY
     Route: 042
     Dates: start: 20220309, end: 20220311
  3. FLUDARABINE PHOSPHATE [Suspect]
     Active Substance: FLUDARABINE PHOSPHATE
     Indication: Lymphodepletion
     Dosage: 57.5 MILLIGRAM, ONCE A DAY
     Route: 042
     Dates: start: 20220309, end: 20220311
  4. YESCARTA [Suspect]
     Active Substance: AXICABTAGENE CILOLEUCEL
     Indication: Diffuse large B-cell lymphoma stage IV
     Dosage: 172.8 MILLIGRAM, 1 TOTAL
     Route: 042
     Dates: start: 20220314, end: 20220314
  5. TOCILIZUMAB [Suspect]
     Active Substance: TOCILIZUMAB
     Indication: Cytokine release syndrome
     Dosage: 720 MILLIGRAM, CYCLICAL ( 4 CURES)
     Route: 042
     Dates: start: 20220315, end: 20220317
  6. DEXAMETHASONE [Suspect]
     Active Substance: DEXAMETHASONE
     Indication: Cytokine release syndrome
     Dosage: 40 MILLIGRAM, ONCE A DAY
     Route: 042
     Dates: start: 20220317, end: 20220324
  7. KINERET [Suspect]
     Active Substance: ANAKINRA
     Indication: Immune effector cell-associated neurotoxicity syndrome
     Dosage: 100 MILLIGRAM, TWO TIMES A DAY
     Route: 058
     Dates: start: 20220322, end: 20220327

REACTIONS (1)
  - Small intestinal perforation [Recovered/Resolved]

NARRATIVE: CASE EVENT DATE: 20220328
